FAERS Safety Report 4397422-4 (Version None)
Quarter: 2004Q3

REPORT INFORMATION
  Report Type: 
  Country: None (occurrence: None)
  Receive Date: 20040708
  Receipt Date: 20040622
  Transmission Date: 20050211
  Serious: Yes (Hospitalization, Other)
  Sender: FDA-Public Use
  Company Number: 2004220550JP

PATIENT
  Age: 21 Year
  Sex: Female

DRUGS (2)
  1. DELTA-CORTEF [Suspect]
     Indication: DERMATOMYOSITIS
     Dosage: SEE IMAGE
  2. METHYLPREDNISOLONE [Concomitant]

REACTIONS (7)
  - BIPOLAR DISORDER [None]
  - CATATONIA [None]
  - DEPRESSION [None]
  - DERMATOMYOSITIS [None]
  - DISEASE RECURRENCE [None]
  - HYPOMANIA [None]
  - STUPOR [None]
